FAERS Safety Report 5052558-X (Version None)
Quarter: 2006Q3

REPORT INFORMATION
  Report Type: 
  Country: None (occurrence: None)
  Receive Date: 20060717
  Receipt Date: 20060622
  Transmission Date: 20061208
  Serious: Yes (Other)
  Sender: FDA-Public Use
  Company Number: US-GLAXOSMITHKLINE-A0610045A

PATIENT
  Age: 39 Year
  Sex: Female
  Weight: 72.7 kg

DRUGS (3)
  1. PAXIL CR [Suspect]
     Indication: DRUG USE FOR UNKNOWN INDICATION
     Dosage: 25MG UNKNOWN
     Route: 048
  2. KLONOPIN [Concomitant]
  3. IRON [Concomitant]

REACTIONS (2)
  - ANAEMIA [None]
  - BLOOD IRON INCREASED [None]
